FAERS Safety Report 12632373 (Version 2)
Quarter: 2016Q3

REPORT INFORMATION
  Report Type: Spontaneous
  Country: US (occurrence: US)
  Receive Date: 20160808
  Receipt Date: 20160808
  Transmission Date: 20161109
  Serious: No
  Sender: FDA-Public Use
  Company Number: US-BEH-2016062664

PATIENT
  Sex: Male
  Weight: 75 kg

DRUGS (20)
  1. NEURONTIN [Concomitant]
     Active Substance: GABAPENTIN
  2. DIPHENHYDRAMINE. [Concomitant]
     Active Substance: DIPHENHYDRAMINE
  3. NEXIUM [Concomitant]
     Active Substance: ESOMEPRAZOLE MAGNESIUM
  4. PERCOCET [Concomitant]
     Active Substance: ACETAMINOPHEN\OXYCODONE HYDROCHLORIDE
  5. PRILOSEC [Concomitant]
     Active Substance: OMEPRAZOLE MAGNESIUM
  6. FISH OIL [Concomitant]
     Active Substance: FISH OIL
  7. LIPITOR [Concomitant]
     Active Substance: ATORVASTATIN CALCIUM
  8. MULTIVITAMIN [Concomitant]
     Active Substance: VITAMINS
  9. LOPRESSOR [Concomitant]
     Active Substance: METOPROLOL TARTRATE
  10. LIDOCAINE/PRILOCAINE [Concomitant]
     Active Substance: LIDOCAINE\PRILOCAINE
  11. NIACIN. [Concomitant]
     Active Substance: NIACIN
  12. ZETIA [Concomitant]
     Active Substance: EZETIMIBE
  13. LMX [Concomitant]
     Active Substance: LIDOCAINE
  14. PSYLLIUM [Concomitant]
     Active Substance: PLANTAGO SEED
  15. SENNA [Concomitant]
     Active Substance: SENNA LEAF\SENNOSIDES\SENNOSIDES A AND B
  16. HIZENTRA [Suspect]
     Active Substance: HUMAN IMMUNOGLOBULIN G
     Indication: IMMUNODEFICIENCY COMMON VARIABLE
     Route: 058
     Dates: start: 20101202
  17. ADVIL [Concomitant]
     Active Substance: IBUPROFEN
  18. RESTORIL [Concomitant]
     Active Substance: TEMAZEPAM
  19. EPIPEN [Concomitant]
     Active Substance: EPINEPHRINE
  20. LYRICA [Concomitant]
     Active Substance: PREGABALIN

REACTIONS (1)
  - Viral infection [Unknown]
